FAERS Safety Report 7357364-9 (Version None)
Quarter: 2011Q1

REPORT INFORMATION
  Report Type: 
  Country: None (occurrence: None)
  Receive Date: 20110311
  Receipt Date: 20110311
  Transmission Date: 20110831
  Serious: Yes (Hospitalization)
  Sender: FDA-Public Use
  Company Number: None

PATIENT
  Sex: Male
  Weight: 84.5 kg

DRUGS (7)
  1. NACL WITH KCL [Concomitant]
  2. HEPARIN [Suspect]
     Indication: THROMBOSIS PROPHYLAXIS
     Dosage: 5,000 UNITS Q8H SUBCUTANEOUS
     Route: 058
     Dates: start: 20110304
  3. RANITIDINE [Concomitant]
  4. METOPROLOL TARTRATE [Concomitant]
  5. DEXTROSE [Concomitant]
  6. REGULAR INSULIN [Suspect]
     Indication: HYPERGLYCAEMIA
     Dosage: SLIDING SCALE PRN SUBCUTANEOUS
     Route: 058
     Dates: start: 20110304
  7. NIFEDIPINE [Concomitant]

REACTIONS (3)
  - PAIN IN EXTREMITY [None]
  - VASCULAR PSEUDOANEURYSM [None]
  - HYPOGLYCAEMIA [None]
